FAERS Safety Report 5483332-8 (Version None)
Quarter: 2007Q4

REPORT INFORMATION
  Report Type: 
  Country: None (occurrence: None)
  Receive Date: 20071012
  Receipt Date: 20071008
  Transmission Date: 20080405
  Serious: Yes (Other)
  Sender: FDA-Public Use
  Company Number: PHRM2007FR02346

PATIENT
  Age: 31 Year
  Sex: Male
  Weight: 95 kg

DRUGS (1)
  1. LAMISIL [Suspect]
     Indication: NAIL TINEA
     Route: 048
     Dates: end: 20071005

REACTIONS (2)
  - BLOOD CREATINE PHOSPHOKINASE INCREASED [None]
  - MUSCLE SPASMS [None]
